FAERS Safety Report 11553414 (Version 1)
Quarter: 2015Q3

REPORT INFORMATION
  Report Type: Spontaneous
  Country: US (occurrence: None)
  Receive Date: 20150924
  Receipt Date: 20150924
  Transmission Date: 20151125
  Serious: No
  Sender: FDA-Public Use
  Company Number: None

PATIENT
  Age: 72 Year
  Sex: Female

DRUGS (1)
  1. VELCADE [Suspect]
     Active Substance: BORTEZOMIB
     Indication: PLASMA CELL MYELOMA
     Dates: start: 20150601, end: 20150923

REACTIONS (5)
  - Dyspnoea [None]
  - Heart rate increased [None]
  - Dehydration [None]
  - Blood creatinine increased [None]
  - Hypertension [None]
